FAERS Safety Report 11814773 (Version 2)
Quarter: 2015Q4

REPORT INFORMATION
  Report Type: Spontaneous
  Country: IN (occurrence: IN)
  Receive Date: 20151209
  Receipt Date: 20151211
  Transmission Date: 20160305
  Serious: Yes (Hospitalization)
  Sender: FDA-Public Use
  Company Number: IN-PFIZER INC-2015416750

PATIENT
  Age: 50 Year
  Sex: Female

DRUGS (1)
  1. SUTENT [Suspect]
     Active Substance: SUNITINIB MALATE
     Indication: METASTATIC RENAL CELL CARCINOMA
     Dosage: 50 MG, 1X/DAY(2 WEEKS ON AND 1 WEEK BREAK)
     Route: 048
     Dates: start: 20151112

REACTIONS (5)
  - Pleural effusion [Recovering/Resolving]
  - Ageusia [Not Recovered/Not Resolved]
  - Fluid intake reduced [Unknown]
  - Constipation [Unknown]
  - Yellow skin [Not Recovered/Not Resolved]

NARRATIVE: CASE EVENT DATE: 2015
